FAERS Safety Report 19041618 (Version 2)
Quarter: 2021Q4

REPORT INFORMATION
  Report Type: Spontaneous
  Country: CA (occurrence: CA)
  Receive Date: 20210322
  Receipt Date: 20211021
  Transmission Date: 20220304
  Serious: Yes (Hospitalization, Other)
  Sender: FDA-Public Use
  Company Number: 2021A147595

PATIENT
  Age: 61 Year
  Sex: Male

DRUGS (5)
  1. BENRALIZUMAB [Suspect]
     Active Substance: BENRALIZUMAB
     Indication: Asthma
     Route: 058
     Dates: start: 201808
  2. FLUTICASONE PROPIONATE [Suspect]
     Active Substance: FLUTICASONE PROPIONATE
     Indication: Asthma
     Dosage: 2000 UG2000.0UG UNKNOWN
     Route: 065
  3. MEPOLIZUMAB [Suspect]
     Active Substance: MEPOLIZUMAB
     Indication: Asthma
     Route: 065
     Dates: start: 2017
  4. PREDNISONE [Suspect]
     Active Substance: PREDNISONE
     Indication: Asthma
     Dosage: 10.0MG UNKNOWN
     Route: 065
  5. SALMETEROL XINAFOATE [Concomitant]
     Active Substance: SALMETEROL XINAFOATE
     Indication: Asthma
     Dosage: 200.0UG UNKNOWN
     Route: 065

REACTIONS (9)
  - Cough [Recovering/Resolving]
  - Dyspnoea [Recovering/Resolving]
  - Inflammation [Recovering/Resolving]
  - Lung opacity [Recovering/Resolving]
  - Pseudomonas infection [Recovering/Resolving]
  - Septic shock [Recovering/Resolving]
  - Streptococcal infection [Recovering/Resolving]
  - Weight decreased [Recovering/Resolving]
  - Drug ineffective [Unknown]
